FAERS Safety Report 25927840 (Version 2)
Quarter: 2025Q4

REPORT INFORMATION
  Report Type: Spontaneous
  Country: US (occurrence: US)
  Receive Date: 20251016
  Receipt Date: 20251020
  Transmission Date: 20260117
  Serious: No
  Sender: ABBVIE
  Company Number: US-ABBVIE-6500211

PATIENT
  Age: 84 Year
  Sex: Female
  Weight: 59.874 kg

DRUGS (1)
  1. HUMIRA [Suspect]
     Active Substance: ADALIMUMAB
     Indication: Psoriatic arthropathy
     Dosage: FORM STRENGTH: 40 MILLIGRAM
     Route: 058
     Dates: start: 2020

REACTIONS (3)
  - Hypoacusis [Not Recovered/Not Resolved]
  - Injection site bruising [Unknown]
  - Product distribution issue [Unknown]

NARRATIVE: CASE EVENT DATE: 20251010
